FAERS Safety Report 17197806 (Version 4)
Quarter: 2020Q2

REPORT INFORMATION
  Report Type: Report from Study
  Country: US (occurrence: US)
  Receive Date: 20191224
  Receipt Date: 20200527
  Transmission Date: 20200713
  Serious: Yes (Hospitalization)
  Sender: FDA-Public Use
  Company Number: US-ACTELION-A-NJ2019-196104

PATIENT
  Sex: Female
  Weight: 46.26 kg

DRUGS (2)
  1. OPSUMIT [Suspect]
     Active Substance: MACITENTAN
     Indication: PULMONARY HYPERTENSION
     Dosage: 10 MG, QD
     Route: 048
  2. TYVASO [Suspect]
     Active Substance: TREPROSTINIL
     Indication: PRODUCT USED FOR UNKNOWN INDICATION
     Route: 065

REACTIONS (16)
  - Malaise [Unknown]
  - Somnolence [Unknown]
  - Kidney infection [Unknown]
  - Cough [Unknown]
  - Depression [Unknown]
  - Anaemia [Unknown]
  - Asthenia [Unknown]
  - Accidental exposure to product [Unknown]
  - Pain [Recovering/Resolving]
  - Eye irritation [Unknown]
  - Nasal congestion [Unknown]
  - Pain in extremity [Recovering/Resolving]
  - Dyspnoea [Unknown]
  - Throat irritation [Unknown]
  - Muscle spasms [Recovering/Resolving]
  - Chest pain [Unknown]
